FAERS Safety Report 13604551 (Version 3)
Quarter: 2019Q2

REPORT INFORMATION
  Report Type: Spontaneous
  Country: US (occurrence: US)
  Receive Date: 20170602
  Receipt Date: 20190524
  Transmission Date: 20190711
  Serious: No
  Sender: FDA-Public Use
  Company Number: US-NOVEN PHARMACEUTICALS, INC.-US2016001530

PATIENT

DRUGS (5)
  1. DAYTRANA [Suspect]
     Active Substance: METHYLPHENIDATE
     Indication: ATTENTION DEFICIT/HYPERACTIVITY DISORDER
     Dosage: 10 MG UNKNOWN
     Route: 062
     Dates: end: 2017
  2. DAYTRANA [Suspect]
     Active Substance: METHYLPHENIDATE
     Dosage: 10 MG, UNK
     Route: 062
     Dates: start: 20170524
  3. DAYTRANA [Suspect]
     Active Substance: METHYLPHENIDATE
     Dosage: CUTTING 20 MG PATCHES INTO HALF TO MAKE A DOSE OF 10 MG, UNK
     Route: 062
     Dates: start: 2017, end: 20170523
  4. FOCALIN [Concomitant]
     Active Substance: DEXMETHYLPHENIDATE HYDROCHLORIDE
     Indication: ATTENTION DEFICIT/HYPERACTIVITY DISORDER
  5. DAYTRANA [Suspect]
     Active Substance: METHYLPHENIDATE
     Dosage: 15 MG, UNK
     Route: 062

REACTIONS (7)
  - Product quality issue [Unknown]
  - Product dose omission [Recovered/Resolved]
  - Drug ineffective [Not Recovered/Not Resolved]
  - Product adhesion issue [Not Recovered/Not Resolved]
  - Wrong technique in product usage process [Recovered/Resolved]
  - Abnormal behaviour [Unknown]
  - Off label use [Recovered/Resolved]

NARRATIVE: CASE EVENT DATE: 2017
